FAERS Safety Report 9839086 (Version 1)
Quarter: 2014Q1

REPORT INFORMATION
  Report Type: Spontaneous
  Country: US (occurrence: US)
  Receive Date: 20140123
  Receipt Date: 20140123
  Transmission Date: 20141002
  Serious: No
  Sender: FDA-Public Use
  Company Number: US-TEVA-457200USA

PATIENT
  Age: 92 Year
  Sex: Male
  Weight: 86.26 kg

DRUGS (3)
  1. PROAIR HFA [Suspect]
     Indication: BRONCHITIS
     Route: 055
  2. FLOMAX [Concomitant]
     Indication: REPRODUCTIVE TRACT DISORDER
  3. XANAX [Concomitant]
     Indication: NERVOUS SYSTEM DISORDER

REACTIONS (2)
  - Dyspnoea [Not Recovered/Not Resolved]
  - Rhinorrhoea [Not Recovered/Not Resolved]
